FAERS Safety Report 10497907 (Version 1)
Quarter: 2014Q4

REPORT INFORMATION
  Report Type: Spontaneous
  Country: US (occurrence: None)
  Receive Date: 20141002
  Receipt Date: 20141002
  Transmission Date: 20150528
  Serious: Yes (Hospitalization)
  Sender: FDA-Public Use
  Company Number: FK201403840

PATIENT
  Age: 46 Year
  Sex: Male

DRUGS (1)
  1. METHOTREXATE [Suspect]
     Active Substance: METHOTREXATE
     Indication: T-CELL TYPE ACUTE LEUKAEMIA
     Dosage: FOUR ROUNDS
     Route: 037

REACTIONS (6)
  - Post lumbar puncture syndrome [None]
  - Procedural headache [None]
  - Febrile neutropenia [None]
  - Neck pain [None]
  - Vision blurred [None]
  - Intracranial hypotension [None]
